FAERS Safety Report 13938335 (Version 3)
Quarter: 2017Q4

REPORT INFORMATION
  Report Type: Spontaneous
  Country: IN (occurrence: IN)
  Receive Date: 20170905
  Receipt Date: 20171110
  Transmission Date: 20180320
  Serious: Yes (Death)
  Sender: FDA-Public Use
  Company Number: IN-B.I. PHARMACEUTICALS,INC./RIDGEFIELD-2017-BI-048692

PATIENT
  Age: 83 Year

DRUGS (1)
  1. PRAXBIND [Suspect]
     Active Substance: IDARUCIZUMAB
     Indication: HAEMORRHAGE PROPHYLAXIS
     Route: 065
     Dates: start: 20170819

REACTIONS (4)
  - Chronic kidney disease [Fatal]
  - Abdominal sepsis [Fatal]
  - Multiple organ dysfunction syndrome [Fatal]
  - Activated partial thromboplastin time prolonged [Fatal]
